FAERS Safety Report 8914927 (Version 2)
Quarter: 2012Q4

REPORT INFORMATION
  Report Type: Report from Study
  Country: NL (occurrence: NL)
  Receive Date: 20121119
  Receipt Date: 20121204
  Transmission Date: 20130627
  Serious: Yes (Hospitalization, Other)
  Sender: FDA-Public Use
  Company Number: NL-ROCHE-1156837

PATIENT
  Age: 40 Year
  Sex: Female

DRUGS (3)
  1. CAPECITABINE [Suspect]
     Indication: BREAST CANCER
     Dosage: last dose prior to SAE: 12/Jul/2009
     Route: 048
     Dates: start: 20090316
  2. LETROZOLE [Suspect]
     Indication: BREAST CANCER
     Dosage: last dose prior to SAE: 12/Jul/2011
     Route: 048
     Dates: start: 20090729
  3. DOCETAXEL [Suspect]
     Indication: BREAST CANCER
     Dosage: last dose prior to SAE: 29/jun/2009
     Route: 042
     Dates: start: 20090316

REACTIONS (1)
  - Chondrosarcoma [Recovered/Resolved]
